FAERS Safety Report 9414818 (Version 2)
Quarter: 2013Q3

REPORT INFORMATION
  Report Type: Spontaneous
  Country: IT (occurrence: IT)
  Receive Date: 20130723
  Receipt Date: 20130918
  Transmission Date: 20140515
  Serious: Yes (Life-Threatening, Hospitalization, Other)
  Sender: FDA-Public Use
  Company Number: IT-WATSON-2013-12762

PATIENT
  Age: 64 Year
  Sex: Female

DRUGS (10)
  1. MIRTAZAPINE (UNKNOWN) [Suspect]
     Indication: DRUG ABUSE
     Dosage: 600 MG, UNK
     Route: 048
     Dates: start: 20130613, end: 20130613
  2. MIRTAZAPINE (UNKNOWN) [Suspect]
     Indication: INTENTIONAL OVERDOSE
  3. ENALAPRIL (UNKNOWN) [Suspect]
     Indication: INTENTIONAL OVERDOSE
     Dosage: 70 MG, UNK
     Route: 048
     Dates: start: 20130613, end: 20130613
  4. ENALAPRIL (UNKNOWN) [Suspect]
     Indication: DRUG ABUSE
  5. SEROQUEL [Suspect]
     Indication: PRODUCT USED FOR UNKNOWN INDICATION
     Dosage: 3000 MG, UNK
     Route: 048
     Dates: start: 20130613, end: 20130613
  6. EFEXOR [Suspect]
     Indication: PRODUCT USED FOR UNKNOWN INDICATION
     Dosage: 1050 MG, UNK
     Route: 048
     Dates: start: 20130613, end: 20130613
  7. ANSIOLIN [Suspect]
     Indication: PRODUCT USED FOR UNKNOWN INDICATION
     Dosage: 200 MG, UNK
     Dates: start: 20130613, end: 20130613
  8. NOZINAN /00038601/ [Suspect]
     Indication: PRODUCT USED FOR UNKNOWN INDICATION
     Dosage: 2000 MG, UNK
     Route: 048
     Dates: start: 20130613, end: 20130613
  9. TOPAMAX [Suspect]
     Indication: PRODUCT USED FOR UNKNOWN INDICATION
     Dosage: 900 MG, UNK
     Route: 048
     Dates: start: 20130613, end: 20130613
  10. ELONTRIL [Suspect]
     Indication: PRODUCT USED FOR UNKNOWN INDICATION
     Dosage: 4500 MG, UNK
     Route: 048
     Dates: start: 20130613, end: 20130613

REACTIONS (4)
  - Coma [Recovered/Resolved]
  - Hepatic enzyme increased [Recovered/Resolved]
  - Intentional overdose [Recovered/Resolved]
  - Drug abuse [Recovered/Resolved]
